FAERS Safety Report 5107798-8 (Version None)
Quarter: 2006Q3

REPORT INFORMATION
  Report Type: 
  Country: None (occurrence: None)
  Receive Date: 20060919
  Receipt Date: 20060905
  Transmission Date: 20061208
  Serious: Yes (Disabling)
  Sender: FDA-Public Use
  Company Number: GBWYE856405SEP06

PATIENT
  Age: 68 Year
  Weight: 62 kg

DRUGS (4)
  1. ENBREL [Suspect]
     Indication: RHEUMATOID ARTHRITIS
     Dosage: 50MG, FREQUENCY UNKNOWN
     Route: 058
     Dates: start: 20051120, end: 20060224
  2. CALCICHEW-D3 [Concomitant]
     Indication: OSTEOPOROSIS
     Route: 048
     Dates: start: 20031201
  3. COD-LIVER OIL [Concomitant]
     Indication: ARTHROPATHY
     Dosage: 1 DOSEAGE FORM, FREQUENCY UNKNOWN
     Route: 048
     Dates: start: 20050501
  4. ACTONEL [Concomitant]
     Indication: OSTEOPOROSIS
     Dosage: 35MG, FREQUENCY UNKNOWN
     Route: 048
     Dates: start: 20031201

REACTIONS (2)
  - CHOREA [None]
  - HYPERTONIA [None]
